FAERS Safety Report 13784039 (Version 1)
Quarter: 2017Q3

REPORT INFORMATION
  Report Type: Report from Study
  Country: US (occurrence: US)
  Receive Date: 20170724
  Receipt Date: 20170724
  Transmission Date: 20171127
  Serious: Yes (Hospitalization)
  Sender: FDA-Public Use
  Company Number: US-EISAI MEDICAL RESEARCH-EC-2017-029410

PATIENT
  Age: 76 Year
  Sex: Female
  Weight: 53.97 kg

DRUGS (14)
  1. LIPITOR [Concomitant]
     Active Substance: ATORVASTATIN CALCIUM
  2. INSULIN (LANTUS) [Concomitant]
  3. LEVOCYL [Concomitant]
  4. IMDUR [Concomitant]
     Active Substance: ISOSORBIDE MONONITRATE
  5. LANTUS (HUMALOG) [Concomitant]
  6. PROLIA [Concomitant]
     Active Substance: DENOSUMAB
  7. PERAMPANEL [Suspect]
     Active Substance: PERAMPANEL
     Dosage: 6 MG OR PLACEBO
     Route: 048
     Dates: start: 20170330, end: 20170419
  8. PRIMIDONE. [Concomitant]
     Active Substance: PRIMIDONE
  9. ZOLOFT [Concomitant]
     Active Substance: SERTRALINE HYDROCHLORIDE
  10. PERAMPANEL [Suspect]
     Active Substance: PERAMPANEL
     Indication: ESSENTIAL TREMOR
     Dosage: 2 MG OR PLACEBO
     Route: 048
     Dates: start: 20170216, end: 20170308
  11. PERAMPANEL [Suspect]
     Active Substance: PERAMPANEL
     Dosage: 4 MG OR PLACEBO
     Route: 048
     Dates: start: 20170309, end: 20170329
  12. LIDOCAINE 5% PATCH [Concomitant]
     Active Substance: LIDOCAINE
  13. ASPIRIN. [Concomitant]
     Active Substance: ASPIRIN
  14. PERAMPANEL [Suspect]
     Active Substance: PERAMPANEL
     Dosage: 8 MG OR PLACEBO
     Route: 048
     Dates: start: 20170420, end: 20170512

REACTIONS (4)
  - Diabetic ketoacidosis [Recovered/Resolved]
  - Fall [Recovered/Resolved]
  - Cervical vertebral fracture [Recovered/Resolved]
  - Humerus fracture [Recovered/Resolved]

NARRATIVE: CASE EVENT DATE: 20170513
